FAERS Safety Report 22714311 (Version 11)
Quarter: 2024Q3

REPORT INFORMATION
  Report Type: Report from Study
  Country: US (occurrence: US)
  Receive Date: 20230718
  Receipt Date: 20240708
  Transmission Date: 20241016
  Serious: Yes (Other)
  Sender: ACADIA PHARMACEUTICALS
  Company Number: US-ACADIA PHARMACEUTICALS INC.-ACA-2023-TRF-002573

PATIENT
  Age: 14 Year
  Sex: Female

DRUGS (18)
  1. DAYBUE [Suspect]
     Active Substance: TROFINETIDE
     Indication: Rett syndrome
     Dosage: 15 MILLILITER, BID
     Route: 048
  2. DAYBUE [Suspect]
     Active Substance: TROFINETIDE
     Dosage: 50 MILLILITER, BID
     Route: 048
  3. DAYBUE [Suspect]
     Active Substance: TROFINETIDE
     Dosage: 40 MILLILITER, BID
     Route: 048
  4. DAYBUE [Suspect]
     Active Substance: TROFINETIDE
     Dosage: 35 MILLILITER, BID
     Route: 048
  5. DAYBUE [Suspect]
     Active Substance: TROFINETIDE
     Dosage: 40 MILLILITER, BID
     Route: 048
  6. DAYBUE [Suspect]
     Active Substance: TROFINETIDE
     Dosage: 35 MILLILITER, BID
     Route: 048
     Dates: start: 20230606, end: 20231229
  7. DAYBUE [Suspect]
     Active Substance: TROFINETIDE
     Dosage: 5 MILLILITER, BID
     Route: 048
     Dates: start: 20240131
  8. DAYBUE [Suspect]
     Active Substance: TROFINETIDE
     Dosage: 7 MILLILITER, BID
     Route: 048
     Dates: start: 20240131
  9. DAYBUE [Suspect]
     Active Substance: TROFINETIDE
     Dosage: 11 MILLILITER, BID
     Route: 048
  10. DAYBUE [Suspect]
     Active Substance: TROFINETIDE
     Dosage: 50 MILLILITER, BID
     Route: 048
  11. ZENPEP [Concomitant]
     Active Substance: PANCRELIPASE AMYLASE\PANCRELIPASE LIPASE\PANCRELIPASE PROTEASE
  12. VITAMIN B6 [Concomitant]
     Active Substance: PYRIDOXINE HYDROCHLORIDE
  13. LEVOCETIRIZINE DIHYDROCHLORIDE [Concomitant]
     Active Substance: LEVOCETIRIZINE DIHYDROCHLORIDE
  14. CLARITIN [Concomitant]
     Active Substance: LORATADINE
  15. VITAMINS [Concomitant]
     Active Substance: VITAMINS
  16. CULTURELLE [Concomitant]
     Active Substance: LACTOBACILLUS RHAMNOSUS
  17. MOTRIN [Concomitant]
     Active Substance: IBUPROFEN
  18. AIRBORNE [Concomitant]
     Active Substance: HERBALS\MINERALS\VITAMINS

REACTIONS (19)
  - Condition aggravated [Recovered/Resolved]
  - Seizure [Recovered/Resolved]
  - Gastroenteritis viral [Recovered/Resolved]
  - Constipation [Not Recovered/Not Resolved]
  - Somnolence [Unknown]
  - Gait disturbance [Unknown]
  - Flatulence [Not Recovered/Not Resolved]
  - Drug ineffective [Not Recovered/Not Resolved]
  - Prescribed underdose [Not Recovered/Not Resolved]
  - Upper respiratory tract infection [Recovered/Resolved]
  - Thirst [Not Recovered/Not Resolved]
  - Urinary incontinence [Not Recovered/Not Resolved]
  - Underdose [Not Recovered/Not Resolved]
  - Retching [Unknown]
  - Diarrhoea [Recovering/Resolving]
  - Diarrhoea [Not Recovered/Not Resolved]
  - Diarrhoea [Recovering/Resolving]
  - Diarrhoea [Recovering/Resolving]
  - Diarrhoea [Not Recovered/Not Resolved]

NARRATIVE: CASE EVENT DATE: 20230607
